FAERS Safety Report 8980987 (Version 1)
Quarter: 2012Q4

REPORT INFORMATION
  Report Type: 
  Country: CA (occurrence: CA)
  Receive Date: 20121221
  Receipt Date: 20121221
  Transmission Date: 20130627
  Serious: Yes (Other)
  Sender: FDA-Public Use
  Company Number: CA-PFIZER INC-2012277268

PATIENT
  Age: 36 Year
  Sex: Female

DRUGS (2)
  1. METRONIDAZOLE [Suspect]
     Dosage: UNK
     Route: 065
     Dates: start: 20120526
  2. DOXYCYCLINE HYCLATE [Suspect]
     Dosage: UNK
     Route: 065
     Dates: start: 20120526

REACTIONS (2)
  - Pruritus [Unknown]
  - Urticaria [Unknown]
